FAERS Safety Report 12454679 (Version 1)
Quarter: 2016Q2

REPORT INFORMATION
  Report Type: Spontaneous
  Country: US (occurrence: US)
  Receive Date: 20160610
  Receipt Date: 20160610
  Transmission Date: 20160815
  Serious: Yes (Hospitalization, Other)
  Sender: FDA-Public Use
  Company Number: US-APOTEX-2016AP008907

PATIENT
  Age: 23 Year
  Sex: Male

DRUGS (2)
  1. DEXTROAMPHETAMINE SACCHARATE, AMPHE/01345401/ [Suspect]
     Active Substance: AMPHETAMINE ASPARTATE\AMPHETAMINE SULFATE\DEXTROAMPHETAMINE SACCHARATE\DEXTROAMPHETAMINE SULFATE
     Indication: PRODUCT USED FOR UNKNOWN INDICATION
     Dosage: CONSUMED LARGE UNKNOWN QUANTITY
     Route: 048
  2. FLECAINIDE ACETATE. [Suspect]
     Active Substance: FLECAINIDE ACETATE
     Indication: ARRHYTHMIA
     Dosage: CONSUMED LARGE UNKNOWN QUANTITY
     Route: 048

REACTIONS (10)
  - Intentional overdose [Recovered/Resolved]
  - Ventricular fibrillation [Recovered/Resolved]
  - Transaminases increased [None]
  - Ventricular dyssynchrony [Recovered/Resolved]
  - Blood lactic acid increased [None]
  - Drug interaction [Recovered/Resolved]
  - Haemodynamic instability [Recovered/Resolved]
  - Toxicity to various agents [Recovered/Resolved]
  - Unresponsive to stimuli [Recovered/Resolved]
  - Suicide attempt [Recovered/Resolved]
